FAERS Safety Report 6753889-5 (Version None)
Quarter: 2010Q2

REPORT INFORMATION
  Report Type: 
  Country: None (occurrence: None)
  Receive Date: 20100520
  Receipt Date: 20090911
  Transmission Date: 20101027
  Serious: Yes (Other)
  Sender: FDA-Public Use
  Company Number: 2009209258

PATIENT
  Age: 57 Year
  Sex: Female

DRUGS (8)
  1. PROVERA [Suspect]
     Indication: HORMONE REPLACEMENT THERAPY
     Dosage: 2.5 MG, ORAL ; 2.5 MG, ORAL
     Route: 048
     Dates: start: 19980101, end: 20000101
  2. PROVERA [Suspect]
     Indication: HORMONE REPLACEMENT THERAPY
     Dosage: 2.5 MG, ORAL ; 2.5 MG, ORAL
     Route: 048
     Dates: start: 19960101
  3. MEDROXYPROGESTERONE [Suspect]
     Indication: HORMONE REPLACEMENT THERAPY
     Dosage: 2.5 MG, ORAL ; 2.5 MG ; 2.5 MG
     Route: 048
     Dates: start: 19970101, end: 19970201
  4. MEDROXYPROGESTERONE [Suspect]
     Indication: HORMONE REPLACEMENT THERAPY
     Dosage: 2.5 MG, ORAL ; 2.5 MG ; 2.5 MG
     Route: 048
     Dates: start: 20000101
  5. MEDROXYPROGESTERONE [Suspect]
     Indication: HORMONE REPLACEMENT THERAPY
     Dosage: 2.5 MG, ORAL ; 2.5 MG ; 2.5 MG
     Route: 048
     Dates: start: 20010101
  6. ESTRATEST [Suspect]
     Indication: HORMONE REPLACEMENT THERAPY
     Dosage: 2.5 .25MG
     Dates: start: 19960801, end: 20010101
  7. CYCRIN [Suspect]
     Indication: HORMONE REPLACEMENT THERAPY
     Dosage: 2.5 MG
     Dates: start: 19970101
  8. PREMPRO [Suspect]
     Indication: HORMONE REPLACEMENT THERAPY
     Dosage: 0.625/2.5MG
     Dates: start: 19950101, end: 19960101

REACTIONS (1)
  - BREAST CANCER FEMALE [None]
